FAERS Safety Report 13185974 (Version 2)
Quarter: 2017Q2

REPORT INFORMATION
  Report Type: Spontaneous
  Country: US (occurrence: US)
  Receive Date: 20170203
  Receipt Date: 20170521
  Transmission Date: 20170830
  Serious: No
  Sender: FDA-Public Use
  Company Number: US-TEVA-735973ACC

PATIENT
  Sex: Female

DRUGS (1)
  1. PROAIR RESPICLICK [Suspect]
     Active Substance: ALBUTEROL SULFATE
     Indication: ASTHMA
     Dosage: TAKEN IN THE AM AND PRN THROUGHOUT THE DAY
     Route: 065
     Dates: start: 20161118, end: 2016

REACTIONS (1)
  - Urticaria [Unknown]
